FAERS Safety Report 4998184-X (Version None)
Quarter: 2006Q2

REPORT INFORMATION
  Report Type: 
  Country: None (occurrence: None)
  Receive Date: 20060510
  Receipt Date: 20051219
  Transmission Date: 20061013
  Serious: Yes (Hospitalization, Other)
  Sender: FDA-Public Use
  Company Number: US-MERCK-0512USA02784

PATIENT
  Age: 47 Year
  Sex: Female
  Weight: 77 kg

DRUGS (4)
  1. VIOXX [Suspect]
     Indication: BACK PAIN
     Route: 048
     Dates: start: 20010801, end: 20021001
  2. ZOLOFT [Concomitant]
     Route: 065
  3. IBUPROFEN [Concomitant]
     Route: 065
  4. TYLENOL [Concomitant]
     Route: 065

REACTIONS (15)
  - ANGINA UNSTABLE [None]
  - ARRHYTHMIA [None]
  - ATRIOVENTRICULAR BLOCK COMPLETE [None]
  - ATTENTION DEFICIT/HYPERACTIVITY DISORDER [None]
  - CHEST PAIN [None]
  - CORONARY ARTERY DISEASE [None]
  - DEPRESSION [None]
  - FATIGUE [None]
  - GASTROOESOPHAGEAL REFLUX DISEASE [None]
  - HYPERTENSION [None]
  - INSOMNIA [None]
  - MUSCLE SPASMS [None]
  - MYOCARDIAL ISCHAEMIA [None]
  - OEDEMA [None]
  - STOMACH DISCOMFORT [None]
